FAERS Safety Report 4490431-6 (Version None)
Quarter: 2004Q4

REPORT INFORMATION
  Report Type: 
  Country: None (occurrence: None)
  Receive Date: 20041028
  Receipt Date: 20041019
  Transmission Date: 20050328
  Serious: Yes (Life-Threatening, Hospitalization)
  Sender: FDA-Public Use
  Company Number: 2004221951JP

PATIENT
  Age: 53 Year
  Sex: Female
  Weight: 22.6799 kg

DRUGS (7)
  1. CABERGOLINE [Suspect]
     Indication: PARKINSON'S DISEASE
     Dosage: 2  MG, QD, ORAL
     Route: 048
     Dates: start: 20020124, end: 20040630
  2. LOXOPROFEN SODIUM (LOXOPROFEN SODIUM ) [Suspect]
     Indication: OEDEMA PERIPHERAL
     Dosage: 60 MG, TID , ORAL
     Route: 048
     Dates: start: 20040623, end: 20040630
  3. ENTACAPONE (ENTACAPONE) [Suspect]
     Indication: PARKINSON'S DISEASE
     Dosage: SEE IMAGE
     Route: 048
     Dates: start: 20040605, end: 20040614
  4. ENTACAPONE (ENTACAPONE) [Suspect]
     Indication: PARKINSON'S DISEASE
     Dosage: SEE IMAGE
     Route: 048
     Dates: start: 20040327
  5. NEO DOPASTON [Concomitant]
  6. SYMMETREL [Concomitant]
  7. ARTRANE (TRIHEXYPHENIDYL HYDROCHLORIDE) [Concomitant]

REACTIONS (26)
  - AORTIC VALVE INCOMPETENCE [None]
  - BLOOD PRESSURE DIASTOLIC DECREASED [None]
  - BLOOD PRESSURE SYSTOLIC INCREASED [None]
  - CARDIAC VALVE DISEASE [None]
  - CONDITION AGGRAVATED [None]
  - DRUG INTERACTION [None]
  - ERYTHEMA [None]
  - FACE OEDEMA [None]
  - FLUID RETENTION [None]
  - INDURATION [None]
  - INFLAMMATION [None]
  - MITRAL VALVE INCOMPETENCE [None]
  - OEDEMA PERIPHERAL [None]
  - PARKINSON'S DISEASE [None]
  - PERICARDIAL EFFUSION [None]
  - PLATELET COUNT DECREASED [None]
  - PLEURAL EFFUSION [None]
  - PNEUMONIA [None]
  - PRODUCTIVE COUGH [None]
  - PULMONARY VALVE INCOMPETENCE [None]
  - RALES [None]
  - RESPIRATORY DISORDER [None]
  - SWELLING [None]
  - THROMBOPHLEBITIS [None]
  - TRICUSPID VALVE INCOMPETENCE [None]
  - WEIGHT INCREASED [None]
